FAERS Safety Report 16749162 (Version 1)
Quarter: 2019Q3

REPORT INFORMATION
  Report Type: Spontaneous
  Country: SK (occurrence: SK)
  Receive Date: 20190828
  Receipt Date: 20190828
  Transmission Date: 20191005
  Serious: Yes (Death, Hospitalization)
  Sender: FDA-Public Use
  Company Number: SK-TEVA-2019-SK-1097828

PATIENT
  Age: 58 Year
  Sex: Male

DRUGS (14)
  1. LEVEMIR [Concomitant]
     Active Substance: INSULIN DETEMIR
     Indication: DIABETES MELLITUS
     Dosage: UNK
     Dates: start: 20161103
  2. CEBION                             /00008001/ [Concomitant]
     Indication: MALNUTRITION
  3. DEGAN [Concomitant]
     Active Substance: METOCLOPRAMIDE HYDROCHLORIDE
     Indication: DYSPEPSIA
     Dosage: UNK
     Dates: start: 20170518
  4. TANEZUMAB [Suspect]
     Active Substance: TANEZUMAB
     Dosage: EVERY 8 WEEKS
     Route: 058
     Dates: start: 20170425
  5. OLTAR [Concomitant]
     Indication: DIABETES MELLITUS
     Dosage: UNK
     Dates: start: 20161103
  6. CEBION                             /00008001/ [Concomitant]
     Indication: ASTHENIA
  7. CEBION                             /00008001/ [Concomitant]
     Indication: ANAEMIA
     Dosage: UNK
     Dates: start: 20170518
  8. TANEZUMAB [Suspect]
     Active Substance: TANEZUMAB
     Indication: CANCER PAIN
     Dosage: UNK
     Route: 058
     Dates: start: 20170620
  9. PREDNISON [Concomitant]
     Active Substance: PREDNISONE
     Indication: DISEASE PROGRESSION
     Dosage: UNK
     Dates: start: 20170511
  10. SIOFOR [Concomitant]
     Active Substance: METFORMIN HYDROCHLORIDE
     Indication: DIABETES MELLITUS
     Dosage: UNK
     Dates: start: 20161103
  11. FENTANYL. [Suspect]
     Active Substance: FENTANYL
     Indication: CANCER PAIN
     Dosage: 100 MCG,
     Route: 062
     Dates: start: 20170320
  12. FERRO FOLGAMMA [Concomitant]
     Indication: ANAEMIA
     Dosage: UNK
     Dates: start: 20170511
  13. HELICID                            /00661201/ [Concomitant]
     Active Substance: OMEPRAZOLE
     Indication: GASTROOESOPHAGEAL REFLUX PROPHYLAXIS
     Dosage: UNK
     Dates: start: 20170511
  14. SEVREDOL [Suspect]
     Active Substance: MORPHINE
     Indication: CANCER PAIN
     Dosage: 10 MG, PRN
     Route: 048
     Dates: start: 20170316

REACTIONS (1)
  - Prostate cancer [Fatal]

NARRATIVE: CASE EVENT DATE: 20170626
